FAERS Safety Report 8411273-2 (Version None)
Quarter: 2012Q2

REPORT INFORMATION
  Report Type: 
  Country: None (occurrence: None)
  Receive Date: 20120605
  Receipt Date: 20120503
  Transmission Date: 20120825
  Serious: No
  Sender: FDA-Public Use
  Company Number: US-AMGEN-USASP2012027910

PATIENT
  Sex: Male

DRUGS (6)
  1. METHADONE HYDROCHLORIDE [Concomitant]
     Dosage: UNK
  2. PLAQUENIL [Concomitant]
     Dosage: UNK
  3. SULFASALAZINE [Concomitant]
     Dosage: UNK
  4. NABUMETONE [Concomitant]
     Dosage: UNK
  5. NORCO [Concomitant]
     Dosage: UNK
  6. ENBREL [Suspect]
     Indication: RHEUMATOID ARTHRITIS
     Dosage: 50 MG, QWK

REACTIONS (2)
  - PAIN IN EXTREMITY [None]
  - DRUG INEFFECTIVE [None]
